FAERS Safety Report 16342038 (Version 2)
Quarter: 2019Q2

REPORT INFORMATION
  Report Type: Spontaneous
  Country: US (occurrence: US)
  Receive Date: 20190522
  Receipt Date: 20190528
  Transmission Date: 20190711
  Serious: Yes (Other)
  Sender: FDA-Public Use
  Company Number: US-AUROBINDO-AUR-APL-2019-026822

PATIENT

DRUGS (3)
  1. ACETAMINOPHEN 160MG/5ML [Suspect]
     Active Substance: ACETAMINOPHEN
     Indication: HEPATOBLASTOMA
     Dosage: 30 GRAM PER SQUARE METRE
     Route: 065
  2. ACETYLCYSTEINE. [Suspect]
     Active Substance: ACETYLCYSTEINE
     Indication: HEPATOBLASTOMA
     Dosage: UNK, 4 CYCLE
     Route: 065
  3. CISPLATIN. [Concomitant]
     Active Substance: CISPLATIN
     Indication: HEPATOBLASTOMA
     Dosage: UNK, 4 CYCLE
     Route: 065

REACTIONS (3)
  - Toxicity to various agents [Unknown]
  - Hepatic enzyme increased [Unknown]
  - Product use in unapproved indication [Unknown]
